FAERS Safety Report 19794411 (Version 1)
Quarter: 2021Q3

REPORT INFORMATION
  Report Type: Other
  Country: CA (occurrence: CA)
  Receive Date: 20210907
  Receipt Date: 20210907
  Transmission Date: 20211014
  Serious: Yes (Other)
  Sender: FDA-Public Use
  Company Number: CA-CELLTRION INC.-2021CA011885

PATIENT

DRUGS (11)
  1. BUTYRIC ACID [Concomitant]
     Active Substance: BUTYRIC ACID
  2. DANDELION ROOT [Concomitant]
     Route: 065
  3. VITAMIN C [Concomitant]
     Active Substance: ASCORBIC ACID
  4. BENADRYL [Concomitant]
     Active Substance: DIPHENHYDRAMINE HYDROCHLORIDE
     Indication: PREMEDICATION
     Dosage: 25.0 MILLIGRAM
     Route: 048
  5. BLACK WALNUT (JUGLANS NIGRA POLLEN) [Concomitant]
     Active Substance: JUGLANS NIGRA POLLEN
  6. LACTOBACILLUS ACIDOPHILUS [Concomitant]
     Active Substance: LACTOBACILLUS ACIDOPHILUS
  7. METHYLPREDNISOLONE SODIUM SUCCINATE. [Concomitant]
     Active Substance: METHYLPREDNISOLONE SODIUM SUCCINATE
     Indication: PREMEDICATION
     Dosage: 100.0 MILLIGRAM
     Route: 042
  8. TYLENOL [Concomitant]
     Active Substance: ACETAMINOPHEN
     Indication: PREMEDICATION
     Dosage: 650.0 MILLIGRAM
     Route: 048
  9. RITUXIMAB. [Suspect]
     Active Substance: RITUXIMAB
     Indication: ENCEPHALITIS AUTOIMMUNE
     Dosage: 1000.0 MILLIGRAM
     Route: 041
  10. CELERY SEED [APIUM GRAVEOLENS] [Concomitant]
  11. LAMIVUDINE. [Concomitant]
     Active Substance: LAMIVUDINE

REACTIONS (5)
  - Off label use [Unknown]
  - Urticaria [Unknown]
  - Blood pressure systolic increased [Unknown]
  - Exposure to communicable disease [Unknown]
  - Intentional product use issue [Unknown]
